FAERS Safety Report 24951700 (Version 1)
Quarter: 2025Q1

REPORT INFORMATION
  Report Type: Spontaneous
  Country: JP (occurrence: JP)
  Receive Date: 20250210
  Receipt Date: 20250210
  Transmission Date: 20250408
  Serious: Yes (Hospitalization)
  Sender: BAYER HEALTHCARE PHARMACEUTICALS INC.
  Company Number: JP-BAYER-2024A124528

PATIENT
  Age: 64 Year
  Sex: Male
  Weight: 81.7 kg

DRUGS (3)
  1. NUBEQA [Suspect]
     Active Substance: DAROLUTAMIDE
     Indication: Prostate cancer metastatic
     Dosage: 600 MG, BID
  2. DOCETAXEL [Suspect]
     Active Substance: DOCETAXEL
     Indication: Prostate cancer
     Dosage: UNK, Q3WK
     Route: 042
     Dates: start: 20230621, end: 20231110
  3. DEGARELIX [Concomitant]
     Active Substance: DEGARELIX
     Dates: start: 20230519

REACTIONS (3)
  - Hepatic function abnormal [Recovering/Resolving]
  - Acute kidney injury [Recovering/Resolving]
  - Dehydration [Recovering/Resolving]

NARRATIVE: CASE EVENT DATE: 20240724
